FAERS Safety Report 8947766 (Version 1)
Quarter: 2012Q4

REPORT INFORMATION
  Report Type: Spontaneous
  Country: DK (occurrence: None)
  Receive Date: 20121127
  Receipt Date: 20121127
  Transmission Date: 20130627
  Serious: Yes (Other)
  Sender: FDA-Public Use
  Company Number: 1502745

PATIENT
  Age: 57 Year
  Sex: Female

DRUGS (8)
  1. OXALIPLATIN [Suspect]
     Indication: HER-2 POSITIVE BREAST CANCER
  2. VINORELBINE TARTRATE [Suspect]
     Indication: HER-2 POSITIVE BREAST CANCER
     Dates: start: 20121026
  3. XELODA [Suspect]
     Indication: HER-2 POSITIVE BREAST CANCER
  4. TAXOL [Suspect]
     Indication: HER-2 POSITIVE BREAST CANCER
  5. ARIMIDEX [Suspect]
     Indication: HER-2 POSITIVE BREAST CANCER
  6. ZOLADEX [Suspect]
     Indication: HER-2 POSITIVE BREAST CANCER
  7. FASLODEX [Suspect]
     Indication: HER-2 POSITIVE BREAST CANCER
     Route: 042
  8. HERCEPTIN [Suspect]
     Indication: HER-2 POSITIVE BREAST CANCER

REACTIONS (2)
  - Cardiotoxicity [None]
  - Metastases to liver [None]
